FAERS Safety Report 12934013 (Version 1)
Quarter: 2016Q4

REPORT INFORMATION
  Report Type: Spontaneous
  Country: US (occurrence: US)
  Receive Date: 20161111
  Receipt Date: 20161111
  Transmission Date: 20170207
  Serious: No
  Sender: FDA-Public Use
  Company Number: US-BAYER-2016-206639

PATIENT
  Sex: Female

DRUGS (1)
  1. CLIMARA [Suspect]
     Active Substance: ESTRADIOL
     Indication: HORMONE REPLACEMENT THERAPY
     Dosage: UNK MG, UNK
     Route: 062
     Dates: start: 2015

REACTIONS (8)
  - Hot flush [None]
  - Drug ineffective [None]
  - Feeling hot [Not Recovered/Not Resolved]
  - Product use issue [None]
  - Headache [None]
  - Vulvovaginal dryness [None]
  - Intentional product use issue [None]
  - Product quality issue [None]
